FAERS Safety Report 12556173 (Version 1)
Quarter: 2016Q3

REPORT INFORMATION
  Report Type: Spontaneous
  Country: US (occurrence: None)
  Receive Date: 20160713
  Receipt Date: 20160713
  Transmission Date: 20161109
  Serious: No
  Sender: FDA-Public Use
  Company Number: None

PATIENT
  Age: 34 Year
  Sex: Female

DRUGS (4)
  1. COMBIPATCH [Concomitant]
     Active Substance: ESTRADIOL\NORETHINDRONE ACETATE
  2. PROMETRIUM [Concomitant]
     Active Substance: PROGESTERONE
  3. DESPOPRESSIN [Concomitant]
  4. NORDITROPIN [Suspect]
     Active Substance: SOMATROPIN
     Indication: HYPOPITUITARISM
     Route: 058

REACTIONS (2)
  - Endodontic procedure [None]
  - Gingival recession [None]

NARRATIVE: CASE EVENT DATE: 20160101
